FAERS Safety Report 5108302-0 (Version None)
Quarter: 2006Q3

REPORT INFORMATION
  Report Type: 
  Country: None (occurrence: None)
  Receive Date: 20060914
  Receipt Date: 20060914
  Transmission Date: 20061208
  Serious: Yes (Other)
  Sender: FDA-Public Use
  Company Number: None

PATIENT
  Age: 65 Year
  Sex: Female
  Weight: 89.3586 kg

DRUGS (1)
  1. AVELOX [Suspect]
     Indication: OTITIS MEDIA
     Dosage: 400 MG Q24 HOURS PO [2 DOSES]
     Route: 048
     Dates: start: 20060809, end: 20060810

REACTIONS (3)
  - JOINT SWELLING [None]
  - RASH [None]
  - RENAL FAILURE ACUTE [None]
